FAERS Safety Report 23078541 (Version 1)
Quarter: 2023Q4

REPORT INFORMATION
  Report Type: Spontaneous
  Country: CN (occurrence: CN)
  Receive Date: 20231018
  Receipt Date: 20231018
  Transmission Date: 20240109
  Serious: Yes (Other)
  Sender: FDA-Public Use
  Company Number: CN-GLAXOSMITHKLINE-CN2023APC140149

PATIENT

DRUGS (1)
  1. FLUTICASONE PROPIONATE [Suspect]
     Active Substance: FLUTICASONE PROPIONATE
     Indication: Drug therapy
     Dosage: 1 MG, QD
     Route: 055
     Dates: start: 20230321, end: 20230323

REACTIONS (5)
  - Neoplasm malignant [Recovered/Resolved]
  - Vomiting [Recovered/Resolved]
  - Discomfort [Recovered/Resolved]
  - Nausea [Recovered/Resolved]
  - Symptom recurrence [Recovered/Resolved]

NARRATIVE: CASE EVENT DATE: 20230323
